FAERS Safety Report 20718110 (Version 1)
Quarter: 2022Q2

REPORT INFORMATION
  Report Type: Spontaneous
  Country: CZ (occurrence: CZ)
  Receive Date: 20220418
  Receipt Date: 20220418
  Transmission Date: 20220721
  Serious: Yes (Other)
  Sender: FDA-Public Use
  Company Number: CZ-TEVA-2022-CZ-2027082

PATIENT
  Age: 40 Year
  Sex: Male

DRUGS (7)
  1. FELODIPINE [Suspect]
     Active Substance: FELODIPINE
     Route: 065
  2. AMLODIPINE [Suspect]
     Active Substance: AMLODIPINE BESYLATE
     Route: 065
  3. METOPROLOL [Suspect]
     Active Substance: METOPROLOL
     Route: 065
  4. MOXONIDINE [Suspect]
     Active Substance: MOXONIDINE
     Route: 065
  5. HYDROCHLOROTHIAZIDE [Suspect]
     Active Substance: HYDROCHLOROTHIAZIDE
     Route: 065
  6. NEBIVOLOL [Concomitant]
     Active Substance: NEBIVOLOL
     Route: 065
  7. BROMAZEPAM [Concomitant]
     Active Substance: BROMAZEPAM
     Route: 065

REACTIONS (5)
  - Erectile dysfunction [Recovered/Resolved]
  - Drug intolerance [Unknown]
  - Oedema [Unknown]
  - Off label use [Unknown]
  - Muscle spasms [Unknown]
